FAERS Safety Report 10454413 (Version 1)
Quarter: 2014Q3

REPORT INFORMATION
  Report Type: Spontaneous
  Country: BR (occurrence: BR)
  Receive Date: 20140915
  Receipt Date: 20140915
  Transmission Date: 20150326
  Serious: Yes (Other)
  Sender: FDA-Public Use
  Company Number: BR-009507513-1409BRA005543

PATIENT
  Age: 32 Year
  Sex: Female
  Weight: 65 kg

DRUGS (1)
  1. NUVARING [Suspect]
     Active Substance: ETHINYL ESTRADIOL\ETONOGESTREL
     Indication: CONTRACEPTION
     Dosage: 3 WEEKS OF USE AND 1 WEEK OF PAUSE
     Route: 067
     Dates: start: 2005, end: 2010

REACTIONS (2)
  - Caesarean section [Unknown]
  - Foetal malposition [Recovered/Resolved]

NARRATIVE: CASE EVENT DATE: 20101221
